FAERS Safety Report 18764192 (Version 7)
Quarter: 2021Q4

REPORT INFORMATION
  Report Type: Report from Study
  Country: US (occurrence: US)
  Receive Date: 20210120
  Receipt Date: 20211206
  Transmission Date: 20220303
  Serious: Yes (Hospitalization, Other)
  Sender: FDA-Public Use
  Company Number: US-TAKEDA-US202028980

PATIENT
  Sex: Female

DRUGS (2)
  1. GAMMAGARD LIQUID [Suspect]
     Active Substance: HUMAN IMMUNOGLOBULIN G
     Indication: Selective IgG subclass deficiency
     Dosage: UNK
     Route: 042
  2. COVID-19 VACCINE NOS [Suspect]
     Active Substance: COVID-19 VACCINE NOS
     Indication: Product used for unknown indication
     Route: 065

REACTIONS (21)
  - Blood pressure increased [Unknown]
  - Anxiety [Unknown]
  - Autoimmune disorder [Unknown]
  - Cerebrovascular accident [Unknown]
  - Immunoglobulins increased [Unknown]
  - Panic attack [Unknown]
  - Blood immunoglobulin A decreased [Unknown]
  - Pain [Unknown]
  - Therapy change [Unknown]
  - Lymphadenopathy [Unknown]
  - Urticaria [Recovering/Resolving]
  - Skin disorder [Unknown]
  - Vitiligo [Unknown]
  - Thyroid disorder [Unknown]
  - Connective tissue disorder [Unknown]
  - Rash [Unknown]
  - Temperature intolerance [Unknown]
  - Malaise [Unknown]
  - Vein disorder [Unknown]
  - COVID-19 immunisation [Unknown]
  - Incorrect drug administration rate [Unknown]
